FAERS Safety Report 24540179 (Version 2)
Quarter: 2024Q4

REPORT INFORMATION
  Report Type: Spontaneous
  Country: JP (occurrence: JP)
  Receive Date: 20241023
  Receipt Date: 20241031
  Transmission Date: 20250115
  Serious: Yes (Hospitalization)
  Sender: GALDERMA
  Company Number: JP-GALDERMA-JP2024010040

PATIENT

DRUGS (1)
  1. NEMOLIZUMAB [Suspect]
     Active Substance: NEMOLIZUMAB
     Indication: Dermatitis atopic
     Dosage: 60 MILLIGRAM, IN THE ABDOMEN
     Route: 058
     Dates: start: 20240612, end: 20240612

REACTIONS (3)
  - Hyperventilation [Recovered/Resolved]
  - Hypoaesthesia [Recovered/Resolved]
  - Erythema [Recovered/Resolved]

NARRATIVE: CASE EVENT DATE: 20240612
